FAERS Safety Report 14413645 (Version 1)
Quarter: 2018Q1

REPORT INFORMATION
  Report Type: Spontaneous
  Country: US (occurrence: US)
  Receive Date: 20180118
  Receipt Date: 20180118
  Transmission Date: 20180509
  Serious: Yes (Disabling, Other)
  Sender: FDA-Public Use
  Company Number: None

PATIENT
  Age: 34 Year
  Sex: Female
  Weight: 49.5 kg

DRUGS (1)
  1. BOTOX [Suspect]
     Active Substance: ONABOTULINUMTOXINA
     Indication: SKIN WRINKLING
     Dosage: ?          QUANTITY:50 UNITS;OTHER ROUTE:INJECTION BY NEEDLE?
     Dates: start: 20170830

REACTIONS (17)
  - Depression [None]
  - Vulvovaginal disorder [None]
  - Hypoaesthesia [None]
  - Atrophic vulvovaginitis [None]
  - Alopecia [None]
  - Disturbance in sexual arousal [None]
  - Vulvovaginal discomfort [None]
  - Vulvovaginal dryness [None]
  - Anxiety [None]
  - Fear [None]
  - Depressed level of consciousness [None]
  - Neuropathy peripheral [None]
  - Acne cystic [None]
  - Weight decreased [None]
  - Loss of libido [None]
  - Decreased appetite [None]
  - Rash [None]

NARRATIVE: CASE EVENT DATE: 20180108
